FAERS Safety Report 10572820 (Version 1)
Quarter: 2014Q4

REPORT INFORMATION
  Report Type: Spontaneous
  Country: DE (occurrence: None)
  Receive Date: 20141106
  Receipt Date: 20141106
  Transmission Date: 20150529
  Serious: Yes (Life-Threatening, Hospitalization, Other)
  Sender: FDA-Public Use
  Company Number: 2014BEX00002

PATIENT
  Age: 21 Year
  Sex: Female

DRUGS (7)
  1. AMLODIPINE [Suspect]
     Active Substance: AMLODIPINE BESYLATE
     Dosage: ONCE
     Route: 048
  2. TORSEMIDE. [Suspect]
     Active Substance: TORSEMIDE
     Route: 048
  3. NICOTINIC ACID [Suspect]
     Active Substance: NIACIN
     Route: 048
  4. GABAPENTIN. [Suspect]
     Active Substance: GABAPENTIN
     Route: 048
  5. KETOPROFEN. [Suspect]
     Active Substance: KETOPROFEN
     Route: 048
  6. CARVEDILOL. [Suspect]
     Active Substance: CARVEDILOL
     Dosage: ONCE
     Route: 048
  7. AMITRIPTYLINE [Suspect]
     Active Substance: AMITRIPTYLINE
     Dosage: ONCE
     Route: 048

REACTIONS (14)
  - Loss of consciousness [None]
  - Ventricular hypokinesia [None]
  - Blood potassium increased [None]
  - Cardiac failure [None]
  - Suicide attempt [None]
  - Alanine aminotransferase increased [None]
  - Sinoatrial block [None]
  - Toxicity to various agents [None]
  - Pulse absent [None]
  - Aspartate aminotransferase increased [None]
  - Bradycardia [None]
  - Intentional overdose [None]
  - Blood glucose increased [None]
  - Hypothermia [None]
